FAERS Safety Report 6770858-X (Version None)
Quarter: 2010Q2

REPORT INFORMATION
  Report Type: 
  Country: None (occurrence: None)
  Receive Date: 20100614
  Receipt Date: 20100614
  Transmission Date: 20101027
  Serious: Yes (Disabling)
  Sender: FDA-Public Use
  Company Number: None

PATIENT
  Age: 85 Year
  Sex: Male
  Weight: 83.9154 kg

DRUGS (2)
  1. LEVAQUIN [Suspect]
     Dosage: 500MG CAP ONE/DAY 14 DAYS ORAL
     Route: 048
     Dates: start: 20091028, end: 20091118
  2. LEVAQUIN [Suspect]
     Dosage: 750MG CAP ONE/DAY 5 DAYS ORAL
     Route: 048

REACTIONS (2)
  - MUSCULAR WEAKNESS [None]
  - TENDON RUPTURE [None]
